FAERS Safety Report 5753175-6 (Version None)
Quarter: 2008Q2

REPORT INFORMATION
  Report Type: 
  Country: None (occurrence: None)
  Receive Date: 20080527
  Receipt Date: 20080514
  Transmission Date: 20081010
  Serious: Yes (Other)
  Sender: FDA-Public Use
  Company Number: ENT 2008-0036

PATIENT
  Age: 80 Year
  Sex: Female

DRUGS (10)
  1. COMTAN [Suspect]
     Indication: PARKINSONIAN GAIT
     Dosage: 300 MG (100 MG, 3 IN 1 D) ORAL; 100 MG ORAL
     Route: 048
     Dates: start: 20080226, end: 20080310
  2. COMTAN [Suspect]
     Indication: PARKINSONIAN GAIT
     Dosage: 300 MG (100 MG, 3 IN 1 D) ORAL; 100 MG ORAL
     Route: 048
     Dates: start: 20071218
  3. MADOPAR [Concomitant]
  4. PRAMIPEXOLE DIHYDROCHLORIDE [Concomitant]
  5. DOPS [Concomitant]
  6. MAGMITT KENEI (MAGNESIUM OXIDE) [Concomitant]
  7. MOBIC [Concomitant]
  8. MUCOSTA [Concomitant]
  9. SELEGILINE HYDROCHLORIDE [Concomitant]
  10. SELEGILINE HCL [Concomitant]

REACTIONS (5)
  - CONDITION AGGRAVATED [None]
  - GAIT DISTURBANCE [None]
  - MYELODYSPLASTIC SYNDROME [None]
  - NAUSEA [None]
  - PAIN IN EXTREMITY [None]
